FAERS Safety Report 8499661-X (Version None)
Quarter: 2012Q3

REPORT INFORMATION
  Report Type: 
  Country: None (occurrence: None)
  Receive Date: 20120710
  Receipt Date: 20120706
  Transmission Date: 20120928
  Serious: No
  Sender: FDA-Public Use
  Company Number: US-PFIZER INC-2012162661

PATIENT
  Sex: Female
  Weight: 56.689 kg

DRUGS (1)
  1. IBUPROFEN (ADVIL) [Suspect]
     Dosage: UNK
     Route: 048
     Dates: start: 20120702, end: 20120703

REACTIONS (2)
  - URTICARIA [None]
  - HYPERSENSITIVITY [None]
